FAERS Safety Report 20449953 (Version 1)
Quarter: 2022Q1

REPORT INFORMATION
  Report Type: Spontaneous
  Country: US (occurrence: US)
  Receive Date: 20220209
  Receipt Date: 20220209
  Transmission Date: 20220423
  Serious: No
  Sender: FDA-Public Use
  Company Number: US-TEVA-2022-US-2003420

PATIENT
  Sex: Female

DRUGS (1)
  1. MODAFINIL [Interacting]
     Active Substance: MODAFINIL
     Indication: Fatigue
     Route: 065

REACTIONS (2)
  - Product use in unapproved indication [Unknown]
  - Drug interaction [Unknown]
